FAERS Safety Report 23363677 (Version 1)
Quarter: 2024Q1

REPORT INFORMATION
  Report Type: Other
  Country: IN (occurrence: None)
  Receive Date: 20240103
  Receipt Date: 20240103
  Transmission Date: 20240410
  Serious: Yes (Hospitalization)
  Sender: FDA-Public Use
  Company Number: IN-ROCHE-3480005

PATIENT
  Sex: Female

DRUGS (1)
  1. TECENTRIQ [Suspect]
     Active Substance: ATEZOLIZUMAB
     Indication: Thyroid cancer metastatic
     Route: 041
     Dates: start: 20231211

REACTIONS (2)
  - Off label use [Unknown]
  - Seizure [Unknown]
